FAERS Safety Report 4522982-X (Version None)
Quarter: 2004Q4

REPORT INFORMATION
  Report Type: 
  Country: None (occurrence: None)
  Receive Date: 20041210
  Receipt Date: 20041201
  Transmission Date: 20050328
  Serious: Yes (Hospitalization)
  Sender: FDA-Public Use
  Company Number: JP-JNJFOC-20031102332

PATIENT
  Sex: Female
  Weight: 62 kg

DRUGS (14)
  1. REMICADE [Suspect]
     Route: 041
  2. REMICADE [Suspect]
     Route: 041
  3. REMICADE [Suspect]
     Route: 041
  4. REMICADE [Suspect]
     Indication: RHEUMATOID ARTHRITIS
     Route: 041
  5. LOXONIN [Suspect]
     Indication: RHEUMATOID ARTHRITIS
     Dosage: PATIENT STARTED TO TAKE THIS DOSAGE PRIOR TO 07-FEB-2002
     Route: 049
  6. RHEUMATREX [Suspect]
     Route: 049
  7. RHEUMATREX [Suspect]
     Route: 049
  8. RHEUMATREX [Suspect]
     Route: 049
  9. RHEUMATREX [Suspect]
     Indication: RHEUMATOID ARTHRITIS
     Route: 049
  10. INH [Concomitant]
     Route: 065
  11. PREDNISOLONE [Concomitant]
     Dosage: STARTED PRIOR TO 07-FEB-2002
     Route: 049
  12. ISCOTIN [Concomitant]
     Route: 049
  13. PURSENNID [Concomitant]
     Indication: CONSTIPATION
     Dosage: 2 DOSES= 2 TABLETS
     Route: 049
  14. FOLIAMIN [Concomitant]
     Dosage: STARTED PRIOR TO 07-FEB-2002
     Route: 049

REACTIONS (5)
  - DIARRHOEA [None]
  - ENTERITIS [None]
  - GASTRIC DISORDER [None]
  - INTESTINAL ISCHAEMIA [None]
  - MELAENA [None]
